FAERS Safety Report 12589648 (Version 1)
Quarter: 2016Q3

REPORT INFORMATION
  Report Type: Report from Study
  Country: US (occurrence: US)
  Receive Date: 20160725
  Receipt Date: 20160725
  Transmission Date: 20161109
  Serious: Yes (Hospitalization, Disabling)
  Sender: FDA-Public Use
  Company Number: US-009507513-1607USA007756

PATIENT
  Age: 67 Year
  Sex: Male

DRUGS (12)
  1. MARINOL [Concomitant]
     Active Substance: DRONABINOL
     Dosage: 5 MG, BID, BEFORE MEAL
  2. ALLEGRA [Concomitant]
     Active Substance: FEXOFENADINE HYDROCHLORIDE
     Dosage: 180 MG, QD
  3. ZOFRAN [Concomitant]
     Active Substance: ONDANSETRON HYDROCHLORIDE
     Dosage: 8 MG, PRN
  4. PROTONIX [Concomitant]
     Active Substance: PANTOPRAZOLE SODIUM
     Dosage: 40 MG, QD
  5. SENOKOT S (DOCUSATE SODIUM (+) SENNA) [Concomitant]
     Dosage: UNK, BID
  6. AMBIEN [Concomitant]
     Active Substance: ZOLPIDEM TARTRATE
     Dosage: 5 MG, HS
  7. TEMODAR [Suspect]
     Active Substance: TEMOZOLOMIDE
     Indication: GLIOBLASTOMA
     Dosage: 380 MG DAILY X 5 DAYS EVERY 28 DAYS (200 MG/M2)
     Route: 048
     Dates: start: 20121018, end: 20140110
  8. COMPAZINE [Concomitant]
     Active Substance: PROCHLORPERAZINE MALEATE
     Dosage: 10 MG, PRN
  9. AVASTIN [Suspect]
     Active Substance: BEVACIZUMAB
     Indication: GLIOBLASTOMA
     Dosage: 800 MG (10 MG/KG), EVERY OTHER WEEK
     Route: 042
     Dates: start: 20130809, end: 20140110
  10. REMERON [Concomitant]
     Active Substance: MIRTAZAPINE
     Dosage: 15 MG, HS
  11. METFORMIN [Concomitant]
     Active Substance: METFORMIN HYDROCHLORIDE
     Dosage: 500 MG, BID
  12. KEPPRA [Concomitant]
     Active Substance: LEVETIRACETAM
     Dosage: 1000 MG, BID

REACTIONS (24)
  - Proteinuria [Unknown]
  - Extrapyramidal disorder [Unknown]
  - Hyponatraemia [Unknown]
  - Hypokalaemia [Unknown]
  - Pain [Unknown]
  - Arthralgia [Unknown]
  - Seizure [Unknown]
  - Asthenia [Unknown]
  - White blood cell count decreased [Unknown]
  - Fatigue [Unknown]
  - Hyperglycaemia [Unknown]
  - Dyspnoea [Unknown]
  - Hypocalcaemia [Unknown]
  - Dysgeusia [Unknown]
  - Anaemia [Unknown]
  - Decreased appetite [Unknown]
  - Hypertension [Unknown]
  - Constipation [Unknown]
  - Pyrexia [Unknown]
  - Platelet count decreased [Unknown]
  - Alopecia [Unknown]
  - Fatigue [Unknown]
  - Lymphocyte count decreased [Unknown]
  - Headache [Unknown]

NARRATIVE: CASE EVENT DATE: 20140111
